FAERS Safety Report 10233475 (Version 1)
Quarter: 2014Q2

REPORT INFORMATION
  Report Type: Spontaneous
  Country: US (occurrence: None)
  Receive Date: 20140611
  Receipt Date: 20140611
  Transmission Date: 20141212
  Serious: Yes (Hospitalization)
  Sender: FDA-Public Use
  Company Number: None

PATIENT
  Age: 52 Year
  Sex: Female

DRUGS (10)
  1. AMPYRA [Suspect]
     Indication: MULTIPLE SCLEROSIS
     Route: 048
     Dates: start: 201007
  2. AVONEX [Concomitant]
  3. LAMOTRIGINE [Concomitant]
  4. CELEBREX [Concomitant]
  5. LIPITOR [Concomitant]
  6. NEURONTIN [Concomitant]
  7. NEFAZODONE [Concomitant]
  8. CELEXA [Concomitant]
  9. KEFLEX [Concomitant]
  10. MACROBID [Concomitant]

REACTIONS (2)
  - Arthritis [None]
  - Joint crepitation [None]
